FAERS Safety Report 4646533-4 (Version None)
Quarter: 2005Q2

REPORT INFORMATION
  Report Type: 
  Country: None (occurrence: None)
  Receive Date: 20050427
  Receipt Date: 20040920
  Transmission Date: 20051028
  Serious: Yes (Disabling, Other)
  Sender: FDA-Public Use
  Company Number: US-GLAXOSMITHKLINE-A0526421A

PATIENT
  Age: 72 Year
  Sex: Female

DRUGS (12)
  1. FLOVENT [Suspect]
     Dosage: 2PUFF TWICE PER DAY
     Route: 055
  2. DIFLUCAN [Suspect]
  3. SINGULAIR [Concomitant]
  4. FLONASE [Concomitant]
  5. MIACALCIN [Concomitant]
  6. DIOVAN [Concomitant]
  7. PREMARIN [Concomitant]
  8. PAXIL [Concomitant]
  9. ATIVAN [Concomitant]
  10. COMBIVENT [Concomitant]
  11. DUONEB [Concomitant]
  12. EYE DROPS [Concomitant]

REACTIONS (2)
  - GASTROINTESTINAL DISORDER [None]
  - ORAL CANDIDIASIS [None]
